FAERS Safety Report 9916740 (Version 3)
Quarter: 2014Q1

REPORT INFORMATION
  Report Type: Spontaneous
  Country: IT (occurrence: IT)
  Receive Date: 20140221
  Receipt Date: 20140318
  Transmission Date: 20141002
  Serious: Yes (Hospitalization)
  Sender: FDA-Public Use
  Company Number: IT-ACTAVIS-2014-02692

PATIENT
  Age: 47 Year
  Sex: Female

DRUGS (4)
  1. DOCETAXEL (UNKNOWN) [Suspect]
     Indication: CHEMOTHERAPY
     Dosage: 188 MG, TOTAL
     Route: 042
     Dates: start: 20140120
  2. ZOFRAN                             /00955301/ [Concomitant]
     Indication: PREMEDICATION
  3. SOLDESAM [Concomitant]
     Indication: PREMEDICATION
  4. DELTACORTENE [Concomitant]
     Indication: PRODUCT USED FOR UNKNOWN INDICATION

REACTIONS (2)
  - Oedema [Not Recovered/Not Resolved]
  - Toxic skin eruption [Not Recovered/Not Resolved]
